FAERS Safety Report 6823333-8 (Version None)
Quarter: 2010Q3

REPORT INFORMATION
  Report Type: 
  Country: None (occurrence: None)
  Receive Date: 20100708
  Receipt Date: 20100628
  Transmission Date: 20110219
  Serious: Yes (Disabling, Other)
  Sender: FDA-Public Use
  Company Number: JP-ELI_LILLY_AND_COMPANY-JP201006004150

PATIENT
  Sex: Female
  Weight: 50 kg

DRUGS (8)
  1. EVISTA [Suspect]
     Indication: OSTEOPOROSIS
     Dosage: 60 MG, DAILY (1/D)
     Route: 048
     Dates: start: 20090624, end: 20100403
  2. PARIET [Concomitant]
     Indication: REFLUX OESOPHAGITIS
     Dosage: 10 MG, DAILY (1/D)
     Route: 048
     Dates: start: 20060424
  3. GASMOTIN [Concomitant]
     Indication: GASTRITIS
     Dosage: 5 MG, 2/D
     Route: 048
     Dates: start: 20060424
  4. FANMIL                             /00271801/ [Concomitant]
     Indication: SUPRAVENTRICULAR EXTRASYSTOLES
     Dosage: 100 MG, 2/D
     Route: 048
     Dates: start: 20060407
  5. OXYBUTYNIN CHLORIDE [Concomitant]
     Indication: HYPERTONIC BLADDER
     Dosage: 2 MG, 3/D
     Route: 048
     Dates: start: 20060407
  6. BLADDERON [Concomitant]
     Indication: HYPERTONIC BLADDER
     Dosage: 200 MG, 3/D
     Route: 048
     Dates: start: 20060407
  7. HIBON [Concomitant]
     Indication: STOMATITIS
     Dosage: 20 MG, 3/D
     Route: 048
     Dates: start: 20080326
  8. IMIDAFENACIN [Concomitant]
     Indication: HYPERTONIC BLADDER
     Dosage: UNK, 2/D
     Route: 048
     Dates: start: 20081212

REACTIONS (2)
  - CEREBRAL INFARCTION [None]
  - DEEP VEIN THROMBOSIS [None]
